FAERS Safety Report 13296335 (Version 2)
Quarter: 2017Q3

REPORT INFORMATION
  Report Type: Spontaneous
  Country: US (occurrence: US)
  Receive Date: 20170304
  Receipt Date: 20170906
  Transmission Date: 20171127
  Serious: No
  Sender: FDA-Public Use
  Company Number: US-LUNDBECK-DKLU2025935

PATIENT
  Age: 26 Year
  Sex: Female

DRUGS (4)
  1. NORTHERA [Suspect]
     Active Substance: DROXIDOPA
     Indication: PRODUCT USED FOR UNKNOWN INDICATION
     Dosage: SCHEDULE A (TITRATING)
     Route: 065
     Dates: end: 20170129
  2. NORTHERA [Suspect]
     Active Substance: DROXIDOPA
     Dosage: SCHEDULE A (TITRATING)
     Route: 065
     Dates: end: 20170201
  3. NORTHERA [Suspect]
     Active Substance: DROXIDOPA
     Route: 065
  4. NORTHERA [Suspect]
     Active Substance: DROXIDOPA
     Route: 065
     Dates: start: 20160127

REACTIONS (4)
  - Wrong technique in product usage process [Unknown]
  - Blood pressure increased [Unknown]
  - Malaise [Unknown]
  - Product use complaint [Recovered/Resolved]

NARRATIVE: CASE EVENT DATE: 20170126
